FAERS Safety Report 24078349 (Version 1)
Quarter: 2024Q3

REPORT INFORMATION
  Report Type: Spontaneous
  Country: SI (occurrence: SI)
  Receive Date: 20240711
  Receipt Date: 20240711
  Transmission Date: 20241016
  Serious: Yes (Hospitalization, Other)
  Sender: VIRTUS PHARMACEUTICALS
  Company Number: SI-VIRTUS PHARMACEUTICALS, LLC-2024VTS00016

PATIENT
  Age: 69 Year
  Sex: Male
  Weight: 76 kg

DRUGS (15)
  1. ALBUTEROL [Suspect]
     Active Substance: ALBUTEROL
     Dosage: INITIAL USE
  2. ALBUTEROL [Suspect]
     Active Substance: ALBUTEROL
     Dosage: 5 MG (SOLUTION)
     Route: 051
  3. ASPIRIN [Concomitant]
     Active Substance: ASPIRIN
     Dosage: 100 MG
  4. FUROSEMIDE [Concomitant]
     Active Substance: FUROSEMIDE
     Dosage: 40 MG
  5. FUROSEMIDE [Concomitant]
     Active Substance: FUROSEMIDE
     Dosage: INTERMITTENT BOLUSES
  6. EPLERENONE [Concomitant]
     Active Substance: EPLERENONE
     Dosage: 25 MG
  7. PANTOPRAZOLE [Concomitant]
     Active Substance: PANTOPRAZOLE
     Dosage: 20 MG
  8. ALLOPURINOL [Concomitant]
     Active Substance: ALLOPURINOL
     Dosage: 100 MG
  9. TENOFOVIR [Concomitant]
     Active Substance: TENOFOVIR
     Dosage: 25 MG
  10. PIPERACILLIN AND TAZOBACTAM [Concomitant]
     Active Substance: PIPERACILLIN SODIUM\TAZOBACTAM SODIUM
     Indication: Antibiotic therapy
  11. VANCOMYCIN [Concomitant]
     Active Substance: VANCOMYCIN
     Indication: Antibiotic therapy
  12. MEROPENEM [Concomitant]
     Active Substance: MEROPENEM
     Indication: Antibiotic therapy
  13. POTASSIUM [Concomitant]
     Active Substance: POTASSIUM
     Route: 051
  14. FENOTEROL\IPRATROPIUM BROMIDE [Concomitant]
     Active Substance: FENOTEROL\IPRATROPIUM BROMIDE
  15. MORPHINE [Concomitant]
     Active Substance: MORPHINE
     Route: 042

REACTIONS (10)
  - Arrhythmia [Recovered/Resolved]
  - Tachycardia [Recovered/Resolved]
  - Circulatory collapse [Unknown]
  - Wrong product administered [Recovered/Resolved]
  - Cardiogenic shock [Unknown]
  - Respiratory failure [Unknown]
  - Hypokalaemia [Unknown]
  - Hyperglycaemia [Unknown]
  - Toxicity to various agents [Unknown]
  - Lactic acidosis [Unknown]
